FAERS Safety Report 25434407 (Version 2)
Quarter: 2025Q3

REPORT INFORMATION
  Report Type: Spontaneous
  Country: US (occurrence: US)
  Receive Date: 20250613
  Receipt Date: 20250725
  Transmission Date: 20251020
  Serious: No
  Sender: TAIHO ONCOLOGY INC
  Company Number: US-TAIHOP-2025-006071

PATIENT
  Age: 39 Year
  Sex: Male

DRUGS (2)
  1. LYTGOBI [Suspect]
     Active Substance: FUTIBATINIB
     Indication: Gastric cancer
     Route: 048
     Dates: start: 20241226
  2. CARBOPLATIN [Concomitant]
     Active Substance: CARBOPLATIN
     Indication: Product used for unknown indication
     Dates: start: 20250329

REACTIONS (5)
  - Dry eye [Unknown]
  - Hyperphosphataemia [Unknown]
  - Off label use [Unknown]
  - Dry mouth [Unknown]
  - Disease progression [Unknown]
